FAERS Safety Report 4513293-7 (Version None)
Quarter: 2004Q4

REPORT INFORMATION
  Report Type: 
  Country: None (occurrence: None)
  Receive Date: 20041130
  Receipt Date: 20041117
  Transmission Date: 20050328
  Serious: Yes (Hospitalization)
  Sender: FDA-Public Use
  Company Number: SE-NOVOPROD-240620

PATIENT
  Age: 69 Year
  Sex: Male

DRUGS (23)
  1. MIXTARD 30 NOVOLET [Suspect]
     Indication: DIABETES MELLITUS
  2. INSULATARD FLEXPEN [Suspect]
     Indication: DIABETES MELLITUS
  3. LEVOSIMENDAN [Concomitant]
  4. DOBUTAMINE [Concomitant]
  5. ZYLORIC ^FAES^ [Concomitant]
  6. PRAVIDEL [Concomitant]
  7. WARAN [Concomitant]
  8. LANSOPRAZOLE [Concomitant]
  9. ORALOVITE [Concomitant]
  10. DUROFERON [Concomitant]
  11. LANACRIST [Concomitant]
  12. SPIRONOLACTONE [Concomitant]
  13. STILNOCT [Concomitant]
  14. AMITRIPTYLINE HCL [Concomitant]
  15. ACETYLCYSTEINE [Concomitant]
  16. TRIATEC [Concomitant]
  17. TOREM                                   /GFR/ [Concomitant]
  18. KREDEX [Concomitant]
  19. DEXOFEN ^ASTRA^ [Concomitant]
  20. NITROMEX [Concomitant]
  21. ATROVENT [Concomitant]
  22. SPIRIVA ^BOEHRINGER INGELHEIM^ [Concomitant]
  23. LAKTULOSE ^DAK^ [Concomitant]

REACTIONS (3)
  - BLOOD GLUCOSE DECREASED [None]
  - DIZZINESS [None]
  - DYSPNOEA [None]
